FAERS Safety Report 19997705 (Version 3)
Quarter: 2022Q1

REPORT INFORMATION
  Report Type: Spontaneous
  Country: LT (occurrence: LT)
  Receive Date: 20211026
  Receipt Date: 20220221
  Transmission Date: 20220423
  Serious: Yes (Hospitalization, Congenital Anomaly, Other)
  Sender: FDA-Public Use
  Company Number: NVSC2021LT239823

PATIENT
  Sex: Female
  Weight: 3.32 kg

DRUGS (1)
  1. AMOXICILLIN\CLAVULANATE POTASSIUM [Suspect]
     Active Substance: AMOXICILLIN\CLAVULANATE POTASSIUM
     Indication: Foetal exposure during pregnancy
     Dosage: UNKNOWN MATERNAL DOSE FOR 7 DAYS
     Route: 064

REACTIONS (2)
  - Congenital herpes simplex infection [Not Recovered/Not Resolved]
  - Foetal exposure during pregnancy [Unknown]
